FAERS Safety Report 20226524 (Version 2)
Quarter: 2021Q4

REPORT INFORMATION
  Report Type: Report from Study
  Country: BR (occurrence: BR)
  Receive Date: 20211224
  Receipt Date: 20211228
  Transmission Date: 20220303
  Serious: Yes (Other)
  Sender: FDA-Public Use
  Company Number: BR-NOVARTISPH-NVSC2021BR254252

PATIENT
  Age: 74 Year
  Sex: Female

DRUGS (1)
  1. BROLUCIZUMAB [Suspect]
     Active Substance: BROLUCIZUMAB
     Indication: Macular degeneration
     Dosage: UNK
     Route: 031
     Dates: start: 20211007

REACTIONS (5)
  - Blindness [Recovering/Resolving]
  - Retinal oedema [Recovering/Resolving]
  - Vision blurred [Not Recovered/Not Resolved]
  - Therapeutic product effect decreased [Unknown]
  - Photophobia [Not Recovered/Not Resolved]

NARRATIVE: CASE EVENT DATE: 20211202
